FAERS Safety Report 7953768-1 (Version None)
Quarter: 2011Q4

REPORT INFORMATION
  Report Type: 
  Country: None (occurrence: None)
  Receive Date: 20111202
  Receipt Date: 20111122
  Transmission Date: 20120403
  Serious: Yes (Life-Threatening, Hospitalization)
  Sender: FDA-Public Use
  Company Number: US-PFIZER INC-2011253760

PATIENT
  Sex: Male
  Weight: 106.58 kg

DRUGS (18)
  1. FENTANYL [Concomitant]
     Dosage: UNK
     Dates: start: 20110919
  2. ZOFRAN [Concomitant]
     Dosage: UNK
     Dates: start: 20110916
  3. BLINDED THERAPY [Suspect]
     Indication: COLORECTAL CANCER METASTATIC
     Dosage: EVERY 14 DAYS
     Route: 042
     Dates: start: 20110928, end: 20110928
  4. FLUOROURACIL [Suspect]
     Dosage: 2400 MG/M2, ON DAY 1 AND 2 EVERY 14 DAYS
     Route: 042
     Dates: start: 20110928, end: 20110928
  5. OPIUM TINCTURE [Concomitant]
     Dosage: UNK
     Dates: start: 20111001
  6. FLUOROURACIL [Suspect]
     Indication: COLORECTAL CANCER METASTATIC
     Dosage: 400 MG/M2, ON DAY 1 EVERY 14 DAYS
     Route: 042
     Dates: start: 20110928, end: 20110928
  7. IRINOTECAN HCL [Suspect]
     Indication: COLORECTAL CANCER METASTATIC
     Dosage: 180 MG/M2, DAY 1 EVERY 14 DAYS
     Route: 042
     Dates: start: 20110928, end: 20110928
  8. LOMOTIL [Concomitant]
     Dosage: UNK
     Dates: start: 20111003
  9. DIFLUCAN [Concomitant]
     Dosage: UNK
     Dates: start: 20111102
  10. NYSTATIN [Concomitant]
     Dosage: UNK
     Dates: start: 20111102
  11. MEGACE [Concomitant]
     Dosage: UNK
     Dates: start: 20111001
  12. ZOLOFT [Concomitant]
     Dosage: UNK
     Dates: start: 20111001
  13. LEUCOVORIN CALCIUM [Suspect]
     Indication: COLORECTAL CANCER METASTATIC
     Dosage: 400 MG/M2, DAY 1 EVERY 14 DAYS
     Route: 042
     Dates: start: 20110928, end: 20110928
  14. HYDROCODONE [Concomitant]
     Dosage: UNK
     Dates: start: 20110819
  15. PROMETHAZINE [Concomitant]
     Dosage: UNK
     Dates: start: 20111003
  16. CULTURELLE [Concomitant]
     Dosage: UNK
     Dates: start: 20111001
  17. QUESTRAN [Concomitant]
     Dosage: UNK
     Dates: start: 20111001
  18. BICITRA [Concomitant]
     Dosage: UNK
     Dates: start: 20111001

REACTIONS (4)
  - HYPOVOLAEMIC SHOCK [None]
  - SEPSIS [None]
  - PYREXIA [None]
  - RENAL FAILURE ACUTE [None]
